FAERS Safety Report 4740946-8 (Version None)
Quarter: 2005Q3

REPORT INFORMATION
  Report Type: 
  Country: None (occurrence: None)
  Receive Date: 20050808
  Receipt Date: 20050723
  Transmission Date: 20060218
  Serious: Yes (Hospitalization)
  Sender: FDA-Public Use
  Company Number: 200506300

PATIENT
  Age: 42 Year
  Sex: Female
  Weight: 54.4316 kg

DRUGS (4)
  1. BOTOX [Suspect]
     Indication: ARTHROPATHY
     Dosage: 175 UNITS PRN IM
     Route: 030
     Dates: start: 20031101
  2. BOTOX [Suspect]
     Indication: MIGRAINE
     Dosage: 175 UNITS PRN IM
     Route: 030
     Dates: start: 20031101
  3. BOTOX [Suspect]
     Indication: MYALGIA
     Dosage: 175 UNITS PRN IM
     Route: 030
     Dates: start: 20031101
  4. ZNAFLEX [Concomitant]

REACTIONS (4)
  - DRUG INEFFECTIVE [None]
  - DYSPHAGIA [None]
  - NO REACTION ON PREVIOUS EXPOSURE TO DRUG [None]
  - THERAPEUTIC RESPONSE DECREASED [None]
